FAERS Safety Report 5447231-X (Version None)
Quarter: 2007Q3

REPORT INFORMATION
  Report Type: 
  Country: None (occurrence: None)
  Receive Date: 20070910
  Receipt Date: 20070904
  Transmission Date: 20080115
  Serious: Yes (Other)
  Sender: FDA-Public Use
  Company Number: FRWYE268305SEP07

PATIENT
  Sex: Female

DRUGS (3)
  1. RHINADVIL [Suspect]
     Indication: PYREXIA
     Route: 048
     Dates: start: 20070401, end: 20070501
  2. METFORMIN HCL [Concomitant]
     Dosage: UNKNOWN
  3. BROMAZEPAM [Concomitant]
     Dosage: UNKNOWN

REACTIONS (7)
  - ABDOMINAL PAIN UPPER [None]
  - ANAEMIA [None]
  - CHOLELITHIASIS [None]
  - INTENTIONAL DRUG MISUSE [None]
  - RED BLOOD CELL SEDIMENTATION RATE INCREASED [None]
  - THROMBOCYTOPENIA [None]
  - WEIGHT DECREASED [None]
